FAERS Safety Report 22236628 (Version 1)
Quarter: 2023Q2

REPORT INFORMATION
  Report Type: Spontaneous
  Country: IT (occurrence: IT)
  Receive Date: 20230420
  Receipt Date: 20230420
  Transmission Date: 20230721
  Serious: Yes (Hospitalization, Other)
  Sender: FDA-Public Use
  Company Number: IT-PAIPHARMA-2023-IT-000071

PATIENT
  Age: 28 Year
  Sex: Female

DRUGS (1)
  1. LITHIUM [Suspect]
     Active Substance: LITHIUM
     Indication: Bipolar disorder
     Route: 048

REACTIONS (2)
  - Cardiac arrest [Recovered/Resolved]
  - Suicide attempt [Recovered/Resolved]
